FAERS Safety Report 18227889 (Version 1)
Quarter: 2020Q3

REPORT INFORMATION
  Report Type: Spontaneous
  Country: CZ (occurrence: CZ)
  Receive Date: 20200903
  Receipt Date: 20200903
  Transmission Date: 20201103
  Serious: Yes (Hospitalization, Other)
  Sender: FDA-Public Use
  Company Number: CZ-MYLANLABS-2020M1063079

PATIENT
  Age: 67 Year
  Sex: Female

DRUGS (12)
  1. ZOLPIDEM [Suspect]
     Active Substance: ZOLPIDEM TARTRATE
     Dosage: INCREASED THE DOSE TO 20 MG
     Route: 048
  2. GUAIFENESIN. [Concomitant]
     Active Substance: GUAIFENESIN
     Indication: PAIN
     Dosage: 1?2 TBL
     Route: 065
  3. INSULIN [Concomitant]
     Active Substance: INSULIN NOS
     Indication: TYPE 2 DIABETES MELLITUS
     Dosage: UNK
     Route: 065
  4. ZOLPIDEM [Suspect]
     Active Substance: ZOLPIDEM TARTRATE
     Indication: INSOMNIA
     Dosage: 10 MILLIGRAM
     Route: 048
  5. TRAZODON [Concomitant]
     Active Substance: TRAZODONE HYDROCHLORIDE
     Indication: DEPRESSION
     Dosage: UNK
  6. CAFFEINE                           /00060502/ [Concomitant]
     Active Substance: CAFFEINE CITRATE
     Indication: PAIN
     Dosage: UNK, 1?2
     Route: 065
  7. METFORMIN [Concomitant]
     Active Substance: METFORMIN HYDROCHLORIDE
     Indication: TYPE 2 DIABETES MELLITUS
     Dosage: UNK
     Route: 065
  8. ZOLPIDEM [Suspect]
     Active Substance: ZOLPIDEM TARTRATE
     Dosage: INCREASED THE DOSE TO THREE TABLETS A NIGHT AND HALF A TABLET A DAY
  9. ZOLPIDEM [Suspect]
     Active Substance: ZOLPIDEM TARTRATE
     Dosage: 35 MILLIGRAM, QD
     Route: 065
  10. PARACETAMOL [Concomitant]
     Active Substance: ACETAMINOPHEN
     Indication: PAIN
     Dosage: 1?2 TBL
     Route: 065
  11. ZOLPIDEM [Suspect]
     Active Substance: ZOLPIDEM TARTRATE
     Dosage: 20 MILLIGRAM, QD
     Route: 065
  12. OXAZEPAM. [Concomitant]
     Active Substance: OXAZEPAM
     Indication: ANXIETY
     Dosage: UNK

REACTIONS (6)
  - Intentional product misuse [Recovered/Resolved]
  - Overdose [Unknown]
  - Suicidal ideation [Recovered/Resolved]
  - Drug abuse [Unknown]
  - Drug ineffective [Recovered/Resolved]
  - Depression [Recovered/Resolved]
